FAERS Safety Report 12782750 (Version 1)
Quarter: 2016Q3

REPORT INFORMATION
  Report Type: Spontaneous
  Country: US (occurrence: US)
  Receive Date: 20160927
  Receipt Date: 20160927
  Transmission Date: 20161109
  Serious: No
  Sender: FDA-Public Use
  Company Number: US-ASTRAZENECA-2016SE97085

PATIENT
  Sex: Male
  Weight: 88.5 kg

DRUGS (2)
  1. FINASTERIDE. [Concomitant]
     Active Substance: FINASTERIDE
     Indication: PROSTATIC DISORDER
     Route: 048
     Dates: start: 2008
  2. PULMICORT FLEXHALER [Suspect]
     Active Substance: BUDESONIDE
     Indication: ASTHMA
     Dosage: 180 MCG ONE PUFF TWICE PER DAY
     Route: 055
     Dates: start: 201603

REACTIONS (3)
  - Device issue [Unknown]
  - Productive cough [Unknown]
  - Intentional device misuse [Unknown]
